FAERS Safety Report 8312634-2 (Version None)
Quarter: 2012Q2

REPORT INFORMATION
  Report Type: 
  Country: None (occurrence: None)
  Receive Date: 20120424
  Receipt Date: 20120410
  Transmission Date: 20120825
  Serious: Yes (Other)
  Sender: FDA-Public Use
  Company Number: 1201-006

PATIENT
  Age: 85 Year
  Sex: Male

DRUGS (5)
  1. GENTAMICIN SULFATE [Concomitant]
  2. NEXIUM [Concomitant]
  3. PREVACID [Concomitant]
  4. EYLEA [Suspect]
     Indication: AGE-RELATED MACULAR DEGENERATION
     Dosage: 2 MG, ONCE, INTRAVITREAL
     Dates: start: 20111215, end: 20111215
  5. LOTREL (AMLODIPINE BESYLATE W/BENAZEPRIL HYDROCHLOR.) [Concomitant]

REACTIONS (3)
  - CORNEAL DECOMPENSATION [None]
  - EYE PAIN [None]
  - CORNEAL OEDEMA [None]
